FAERS Safety Report 10388607 (Version 1)
Quarter: 2014Q3

REPORT INFORMATION
  Report Type: Spontaneous
  Country: ES (occurrence: ES)
  Receive Date: 20140815
  Receipt Date: 20140815
  Transmission Date: 20150326
  Serious: Yes (Life-Threatening, Hospitalization)
  Sender: FDA-Public Use
  Company Number: ES-009507513-1408ESP009294

PATIENT
  Age: 71 Year
  Sex: Female

DRUGS (4)
  1. TARGIN [Suspect]
     Active Substance: NALOXONE HYDROCHLORIDE\OXYCODONE HYDROCHLORIDE
     Indication: PAIN IN EXTREMITY
     Dosage: 5/2.5MG TWICE DAILY (5MG 2 IN 1 DAYS)
     Route: 048
     Dates: start: 201407, end: 20140719
  2. TRADONAL [Suspect]
     Active Substance: TRAMADOL HYDROCHLORIDE
     Indication: PAIN IN EXTREMITY
     Dosage: 450 MG (1 IN 1 DAYS)
     Route: 048
     Dates: start: 2013, end: 20140719
  3. AMOXICILLIN (+) CLAVULANATE POTASSIUM [Concomitant]
     Active Substance: AMOXICILLIN\CLAVULANATE POTASSIUM
     Indication: PRODUCT USED FOR UNKNOWN INDICATION
     Dosage: UNK
     Dates: start: 20140719, end: 20140719
  4. TRYPTIZOL [Suspect]
     Active Substance: AMITRIPTYLINE HYDROCHLORIDE
     Indication: PERONEAL MUSCULAR ATROPHY
     Dosage: 150 MG (1 IN 1 DAYS)
     Route: 048
     Dates: start: 20140716, end: 20140719

REACTIONS (3)
  - Cholestasis [Recovered/Resolved]
  - Drug-induced liver injury [Recovering/Resolving]
  - Serotonin syndrome [Unknown]

NARRATIVE: CASE EVENT DATE: 20140717
